FAERS Safety Report 9564224 (Version 2)
Quarter: 2013Q4

REPORT INFORMATION
  Report Type: Report from Study
  Country: DE (occurrence: DE)
  Receive Date: 20130930
  Receipt Date: 20131118
  Transmission Date: 20140711
  Serious: Yes (Death, Hospitalization, Other)
  Sender: FDA-Public Use
  Company Number: DE-ROCHE-1281034

PATIENT
  Age: 51 Year
  Sex: Male
  Weight: 70 kg

DRUGS (5)
  1. BEVACIZUMAB [Suspect]
     Indication: LUNG NEOPLASM MALIGNANT
     Route: 042
     Dates: start: 20130606, end: 20130812
  2. PACLITAXEL [Suspect]
     Indication: PRODUCT USED FOR UNKNOWN INDICATION
     Route: 042
     Dates: start: 20130606, end: 20130812
  3. CARBOPLATIN [Suspect]
     Indication: PRODUCT USED FOR UNKNOWN INDICATION
     Route: 042
     Dates: start: 20130606, end: 20130812
  4. MORPHINE [Concomitant]
     Indication: PAIN
     Route: 058
     Dates: start: 20130819
  5. MORPHINE [Concomitant]
     Indication: METASTASES TO BONE

REACTIONS (2)
  - Malignant neoplasm progression [Fatal]
  - Hypercalcaemia [Recovering/Resolving]
